FAERS Safety Report 25210502 (Version 2)
Quarter: 2025Q2

REPORT INFORMATION
  Report Type: Spontaneous
  Country: US (occurrence: US)
  Receive Date: 20250417
  Receipt Date: 20250514
  Transmission Date: 20250716
  Serious: No
  Sender: PFIZER
  Company Number: US-PFIZER INC-202500014600

PATIENT
  Age: 12 Year
  Sex: Female
  Weight: 21.1 kg

DRUGS (3)
  1. GENOTROPIN [Suspect]
     Active Substance: SOMATROPIN
     Indication: Short stature
     Dosage: 0.9 MG, DAILY (7 DAYS/WEEK)
     Route: 058
     Dates: start: 20250109
  2. GENOTROPIN [Suspect]
     Active Substance: SOMATROPIN
     Dosage: DAILY DOSE: ALTERNATE 0.8 + 1 MG SUBQ DAILY
     Route: 058
     Dates: start: 202502
  3. GENOTROPIN [Suspect]
     Active Substance: SOMATROPIN
     Dosage: DAILY DOSE: ALTERNATE 0.8 + 1 MG SUBQ DAILY
     Route: 058
     Dates: start: 202502

REACTIONS (4)
  - Product prescribing error [Unknown]
  - Device issue [Unknown]
  - Device mechanical issue [Unknown]
  - Anxiety [Unknown]

NARRATIVE: CASE EVENT DATE: 20250109
